FAERS Safety Report 19349704 (Version 1)
Quarter: 2021Q2

REPORT INFORMATION
  Report Type: Spontaneous
  Country: US (occurrence: US)
  Receive Date: 20210528
  Receipt Date: 20210528
  Transmission Date: 20210717
  Serious: Yes (Other)
  Sender: FDA-Public Use
  Company Number: None

PATIENT
  Age: 20 Year
  Sex: Female
  Weight: 78.02 kg

DRUGS (1)
  1. GENERIC LEVOTHYROXINE [Suspect]
     Active Substance: LEVOTHYROXINE
     Indication: THYROID CANCER
     Route: 048
     Dates: start: 201908, end: 201909

REACTIONS (4)
  - Feeling abnormal [None]
  - Asthenia [None]
  - Blood thyroid stimulating hormone abnormal [None]
  - Fatigue [None]
